FAERS Safety Report 5526931-7 (Version None)
Quarter: 2007Q4

REPORT INFORMATION
  Report Type: 
  Country: None (occurrence: None)
  Receive Date: 20071127
  Receipt Date: 20071116
  Transmission Date: 20080405
  Serious: Yes (Other)
  Sender: FDA-Public Use
  Company Number: GB-PFIZER INC-2007097233

PATIENT
  Age: 62 Year
  Sex: Male

DRUGS (16)
  1. CHAMPIX [Suspect]
     Indication: SMOKING CESSATION THERAPY
     Route: 048
     Dates: start: 20070222, end: 20070301
  2. AMLODIPINE [Concomitant]
  3. ATORVASTATIN CALCIUM [Concomitant]
  4. BECLOMETHASONE DIPROPIONATE [Concomitant]
     Route: 055
  5. DOMPERIDONE [Concomitant]
  6. GLYCERYL TRINITRATE [Concomitant]
  7. IPRATROPIUM BROMIDE [Concomitant]
     Route: 055
  8. ISOSORBIDE MONONITRATE [Concomitant]
  9. LANSOPRAZOLE [Concomitant]
  10. MADOPAR [Concomitant]
  11. NOVORAPID [Concomitant]
  12. PREGABALIN [Concomitant]
  13. RAMIPRIL [Concomitant]
  14. ALBUTEROL [Concomitant]
     Route: 055
  15. SERTRALINE [Concomitant]
  16. WARFARIN SODIUM [Concomitant]

REACTIONS (3)
  - DIZZINESS [None]
  - FALL [None]
  - NAUSEA [None]
